FAERS Safety Report 9819738 (Version 3)
Quarter: 2014Q1

REPORT INFORMATION
  Report Type: Spontaneous
  Country: JP (occurrence: JP)
  Receive Date: 20140116
  Receipt Date: 20140129
  Transmission Date: 20141002
  Serious: Yes (Life-Threatening, Other)
  Sender: FDA-Public Use
  Company Number: JP-009507513-1311JPN000725

PATIENT
  Age: 87 Year
  Sex: Male
  Weight: 61 kg

DRUGS (7)
  1. ESLAX INTRAVENOUS 50MG/5.0ML [Suspect]
     Indication: GENERAL ANAESTHESIA
     Dosage: 50 MG, QD
     Route: 042
     Dates: start: 20100607, end: 20100607
  2. ESLAX INTRAVENOUS 50MG/5.0ML [Suspect]
     Dosage: 10 MG, 8 TIMES DAILY
     Route: 042
     Dates: start: 20100607, end: 20100607
  3. BRIDION [Concomitant]
     Indication: NEUROMUSCULAR BLOCKADE REVERSAL
     Route: 042
  4. SEVOFLURANE [Concomitant]
     Indication: GENERAL ANAESTHESIA
     Dosage: UNK
     Route: 055
     Dates: start: 20100607, end: 20100607
  5. ULTIVA [Concomitant]
     Indication: GENERAL ANAESTHESIA
     Dosage: 3 MG, QD
     Route: 041
     Dates: start: 20100607, end: 20100607
  6. ANAPEINE [Concomitant]
     Indication: ANALGESIC THERAPY
     Dosage: 20 ML, UNK
     Route: 008
     Dates: start: 20100607, end: 20100607
  7. ATVAGOREVERSE [Concomitant]
     Indication: NEUROMUSCULAR BLOCKADE REVERSAL
     Dosage: 6 ML, UNK
     Route: 042
     Dates: start: 20100607, end: 20100607

REACTIONS (1)
  - Respiratory arrest [Recovered/Resolved]
